FAERS Safety Report 20291560 (Version 1)
Quarter: 2022Q1

REPORT INFORMATION
  Report Type: Spontaneous
  Country: US (occurrence: US)
  Receive Date: 20220104
  Receipt Date: 20220104
  Transmission Date: 20220423
  Serious: No
  Sender: FDA-Public Use
  Company Number: US-PFIZER INC-2021508852

PATIENT
  Age: 66 Year
  Sex: Female

DRUGS (2)
  1. EUCRISA [Suspect]
     Active Substance: CRISABOROLE
     Indication: Dermatitis atopic
     Dosage: APPLY TO AFFECTED AREAS BID X 2 WEEKS
     Route: 061
     Dates: start: 20200221
  2. EUCRISA [Suspect]
     Active Substance: CRISABOROLE
     Dosage: APPLY TO AFFECTED AREAS ON HAND QHS (EVERY NIGHT AT BEDTIME)
     Route: 061

REACTIONS (3)
  - Drug ineffective [Unknown]
  - Bladder prolapse [Unknown]
  - Off label use [Unknown]
